FAERS Safety Report 10413259 (Version 1)
Quarter: 2014Q2

REPORT INFORMATION
  Report Type: Spontaneous
  Country: US (occurrence: None)
  Receive Date: 20140530
  Receipt Date: 20140530
  Transmission Date: 20141212
  Serious: No
  Sender: FDA-Public Use
  Company Number: 227245

PATIENT
  Sex: Male

DRUGS (1)
  1. PICATO (INGENOL MEBUTATE) (0.05 %, GEL) [Suspect]
     Indication: PRODUCT USED FOR UNKNOWN INDICATION
     Dates: start: 20140420

REACTIONS (2)
  - Product packaging quantity issue [None]
  - Drug administered at inappropriate site [None]
